FAERS Safety Report 17835684 (Version 1)
Quarter: 2020Q2

REPORT INFORMATION
  Report Type: Report from Study
  Country: IN (occurrence: IN)
  Receive Date: 20200528
  Receipt Date: 20200528
  Transmission Date: 20200714
  Serious: Yes (Other)
  Sender: FDA-Public Use
  Company Number: NVSC2020IN031757

PATIENT
  Age: 40 Year
  Sex: Male
  Weight: 90 kg

DRUGS (4)
  1. ELTROXIN [Concomitant]
     Active Substance: LEVOTHYROXINE
     Indication: THYROID DISORDER
     Dosage: 100 MG, QD (1-0-0, PRE-MEAL)
     Route: 048
  2. ELTROXIN [Concomitant]
     Active Substance: LEVOTHYROXINE
     Dosage: 150 MG
     Route: 065
  3. LIPIROSE [Concomitant]
     Indication: BLOOD CHOLESTEROL
     Dosage: UNK
     Route: 048
  4. GALVUS MET [Suspect]
     Active Substance: METFORMIN HYDROCHLORIDE\VILDAGLIPTIN
     Indication: DIABETES MELLITUS
     Dosage: 1 DF, QD(1-0-0, PRE-MEAL, 50/1000 OT)
     Route: 048
     Dates: start: 2018

REACTIONS (4)
  - Overweight [Unknown]
  - Blood triglycerides increased [Unknown]
  - Heart rate increased [Unknown]
  - Thyroid hormones increased [Unknown]
